FAERS Safety Report 8717325 (Version 2)
Quarter: 2013Q4

REPORT INFORMATION
  Report Type: Spontaneous
  Country: US (occurrence: US)
  Receive Date: 20120810
  Receipt Date: 20131101
  Transmission Date: 20140711
  Serious: No
  Sender: FDA-Public Use
  Company Number: US-009507513-2012SP036905

PATIENT
  Age: 48 Year
  Sex: Male

DRUGS (4)
  1. ASMANEX TWISTHALER [Suspect]
     Indication: ASTHMA
     Dosage: INHALE 1 TO 2 INHALATIONS
     Route: 055
     Dates: start: 20110203
  2. LISINOPRIL [Concomitant]
  3. IMITREX (SUMATRIPTAN) [Concomitant]
  4. LIPITOR [Concomitant]

REACTIONS (1)
  - Drug ineffective [Not Recovered/Not Resolved]
